FAERS Safety Report 16838790 (Version 1)
Quarter: 2019Q3

REPORT INFORMATION
  Report Type: Spontaneous
  Country: US (occurrence: US)
  Receive Date: 20190923
  Receipt Date: 20190923
  Transmission Date: 20191005
  Serious: Yes (Life-Threatening, Other)
  Sender: FDA-Public Use
  Company Number: PHEH2019US038981

PATIENT
  Sex: Female

DRUGS (1)
  1. MEKINIST [Suspect]
     Active Substance: TRAMETINIB DIMETHYL SULFOXIDE
     Indication: BRAIN NEOPLASM
     Dosage: 2 MG, QD
     Route: 048
     Dates: start: 20190820

REACTIONS (5)
  - Malignant neoplasm progression [Unknown]
  - Product use in unapproved indication [Unknown]
  - Brain neoplasm [Unknown]
  - Drug ineffective [Unknown]
  - Feeling abnormal [Unknown]
